FAERS Safety Report 13930173 (Version 1)
Quarter: 2017Q3

REPORT INFORMATION
  Report Type: Report from Study
  Country: JP (occurrence: JP)
  Receive Date: 20170901
  Receipt Date: 20170901
  Transmission Date: 20171127
  Serious: Yes (Hospitalization)
  Sender: FDA-Public Use
  Company Number: JP-JNJFOC-20170404473

PATIENT
  Age: 64 Year
  Sex: Male
  Weight: 64.5 kg

DRUGS (13)
  1. ABIRATERONE ACETATE [Suspect]
     Active Substance: ABIRATERONE ACETATE
     Indication: METASTASES TO BONE
     Dosage: CUMULATIVE DOSE OF ABIRATERONE ACETATE TO FIRST REACTION WAS 169000 MG
     Route: 048
     Dates: start: 20160823, end: 20170510
  2. LOXOPROFEN SODIUM [Concomitant]
     Active Substance: LOXOPROFEN SODIUM
     Indication: MYALGIA
     Route: 062
     Dates: start: 20161227
  3. MIRTAZAPINE. [Concomitant]
     Active Substance: MIRTAZAPINE
     Indication: DEPRESSION
     Route: 048
     Dates: start: 2010
  4. RADIUM RA 223 DICHLORIDE [Suspect]
     Active Substance: RADIUM RA-223 DICHLORIDE
     Indication: METASTASES TO BONE
     Dosage: 50 KBQ/KG BODY WEIGHT EVERY 4 WEEKS FOR 6 CYCLES
     Route: 042
     Dates: start: 20160823, end: 20170117
  5. PREDNISOLONE. [Suspect]
     Active Substance: PREDNISOLONE
     Indication: METASTASES TO BONE
     Dosage: THE CUMULATIVE DOSE OF PREDNISOLONE TO FIRST REACTION 1690 MG
     Route: 048
     Dates: start: 20160823, end: 20170510
  6. PREDNISOLONE. [Suspect]
     Active Substance: PREDNISOLONE
     Indication: PROSTATE CANCER STAGE IV
     Dosage: THE CUMULATIVE DOSE OF PREDNISOLONE TO FIRST REACTION 1690 MG
     Route: 048
     Dates: start: 20160823, end: 20170510
  7. RADIUM RA 223 DICHLORIDE [Suspect]
     Active Substance: RADIUM RA-223 DICHLORIDE
     Indication: PROSTATE CANCER STAGE IV
     Dosage: 50 KBQ/KG BODY WEIGHT EVERY 4 WEEKS FOR 6 CYCLES
     Route: 042
     Dates: start: 20160823, end: 20170117
  8. TRAMADOL HYDROCHLORIDE. [Concomitant]
     Active Substance: TRAMADOL HYDROCHLORIDE
     Indication: BACK PAIN
     Route: 048
     Dates: start: 20170117
  9. CELECOXIB. [Concomitant]
     Active Substance: CELECOXIB
     Indication: MYALGIA
     Route: 048
     Dates: start: 20170106
  10. FLUNITRAZEPAM [Concomitant]
     Active Substance: FLUNITRAZEPAM
     Indication: DEPRESSION
     Route: 048
     Dates: start: 2010
  11. ABIRATERONE ACETATE [Suspect]
     Active Substance: ABIRATERONE ACETATE
     Indication: PROSTATE CANCER STAGE IV
     Dosage: CUMULATIVE DOSE OF ABIRATERONE ACETATE TO FIRST REACTION WAS 169000 MG
     Route: 048
     Dates: start: 20160823, end: 20170510
  12. PREGABALIN. [Concomitant]
     Active Substance: PREGABALIN
     Indication: MYALGIA
     Route: 048
     Dates: start: 20170106
  13. CLONAZEPAM. [Concomitant]
     Active Substance: CLONAZEPAM
     Indication: DEPRESSION
     Route: 048
     Dates: start: 2010

REACTIONS (1)
  - Osteoporotic fracture [Recovering/Resolving]

NARRATIVE: CASE EVENT DATE: 20170207
